FAERS Safety Report 8295863-6 (Version None)
Quarter: 2012Q2

REPORT INFORMATION
  Report Type: 
  Country: None (occurrence: None)
  Receive Date: 20120418
  Receipt Date: 20120409
  Transmission Date: 20120825
  Serious: Yes (Other)
  Sender: FDA-Public Use
  Company Number: US-ROCHE-1058091

PATIENT
  Sex: Male

DRUGS (3)
  1. PEGINTERFERON ALFA-2A [Suspect]
     Indication: HEPATITIS C
     Dates: start: 20111006, end: 20120316
  2. BOCEPREVIR [Suspect]
     Indication: HEPATITIS C
     Dates: start: 20111006, end: 20120316
  3. COPEGUS [Suspect]
     Indication: HEPATITIS C
     Dosage: DIVIDED DOSES
     Dates: start: 20111006, end: 20120316

REACTIONS (1)
  - CATARACT OPERATION [None]
